FAERS Safety Report 18668294 (Version 5)
Quarter: 2022Q1

REPORT INFORMATION
  Report Type: Spontaneous
  Country: JP (occurrence: JP)
  Receive Date: 20201228
  Receipt Date: 20220218
  Transmission Date: 20220423
  Serious: Yes (Life-Threatening, Hospitalization, Other)
  Sender: FDA-Public Use
  Company Number: JP-GSKNCCC-CASE-01113256_AE-38590

PATIENT
  Age: 76 Year
  Sex: Male
  Weight: 55 kg

DRUGS (13)
  1. ATOVAQUONE [Suspect]
     Active Substance: ATOVAQUONE
     Indication: Antifungal prophylaxis
     Dosage: 10 ML
     Route: 048
     Dates: start: 20170616, end: 20170624
  2. CEFCAPENE PIVOXIL HYDROCHLORIDE [Suspect]
     Active Substance: CEFCAPENE PIVOXIL HYDROCHLORIDE
     Indication: Infection prophylaxis
     Dosage: 300 MG
     Route: 048
     Dates: start: 20170621, end: 20170624
  3. PREDNISOLONE [Concomitant]
     Active Substance: PREDNISOLONE
     Indication: Interstitial lung disease
     Dosage: 30 MG
     Route: 048
     Dates: start: 20170512
  4. PREDNISOLONE [Concomitant]
     Active Substance: PREDNISOLONE
     Dosage: 35 MG, 1D
     Dates: start: 201706
  5. CILOSTAZOL [Concomitant]
     Active Substance: CILOSTAZOL
     Dosage: UNK
  6. REPAGLINIDE [Concomitant]
     Active Substance: REPAGLINIDE
     Dosage: UNK
  7. LINAGLIPTIN [Concomitant]
     Active Substance: LINAGLIPTIN
     Dosage: UNK
  8. TELMISARTAN [Concomitant]
     Active Substance: TELMISARTAN
     Dosage: UNK
  9. LANSOPRAZOLE [Concomitant]
     Active Substance: LANSOPRAZOLE
     Dosage: UNK
  10. AMLODIPINE BESYLATE [Concomitant]
     Active Substance: AMLODIPINE BESYLATE
     Dosage: UNK
  11. INSULIN LISPRO (GENETICAL RECOMBINATION) [Concomitant]
     Dosage: UNK
  12. SULFAMETHOXAZOLE + TRIMETHOPRIM COMBINATION DRUG [Concomitant]
     Indication: Antifungal prophylaxis
     Dosage: UNK
     Dates: end: 20170622
  13. MICAFUNGIN SODIUM [Concomitant]
     Active Substance: MICAFUNGIN SODIUM
     Indication: Antifungal prophylaxis
     Dosage: UNK
     Dates: start: 20170624, end: 20170710

REACTIONS (9)
  - Sepsis [Recovering/Resolving]
  - Septic shock [Recovering/Resolving]
  - Neutropenia [Recovered/Resolved]
  - Tooth extraction [Recovering/Resolving]
  - Balance disorder [Recovered/Resolved]
  - Fall [Recovered/Resolved]
  - Pyrexia [Recovered/Resolved]
  - Depressed level of consciousness [Recovered/Resolved]
  - Blood pressure decreased [Recovered/Resolved]

NARRATIVE: CASE EVENT DATE: 20170623
